FAERS Safety Report 25243057 (Version 1)
Quarter: 2025Q2

REPORT INFORMATION
  Report Type: Spontaneous
  Country: CH (occurrence: CH)
  Receive Date: 20250428
  Receipt Date: 20250428
  Transmission Date: 20250717
  Serious: Yes (Life-Threatening, Hospitalization, Other)
  Sender: ABBVIE
  Company Number: CH-ABBVIE-6253397

PATIENT
  Age: 44 Year
  Sex: Female
  Weight: 98 kg

DRUGS (6)
  1. LEUPROLIDE ACETATE [Suspect]
     Active Substance: LEUPROLIDE ACETATE
     Indication: Breast cancer metastatic
     Route: 065
  2. Melatonin mepha [Concomitant]
     Indication: Product used for unknown indication
     Route: 048
  3. KISQALI [Suspect]
     Active Substance: RIBOCICLIB SUCCINATE
     Indication: Breast cancer metastatic
     Dosage: START DATE: PRESUMABLY DEC-2024, STOP DATE: MAR-2025
     Route: 048
     Dates: start: 202412, end: 202503
  4. Calcimagon D3 Forte [Concomitant]
     Indication: Product used for unknown indication
     Route: 048
  5. LETROZOLE [Suspect]
     Active Substance: LETROZOLE
     Indication: Breast cancer metastatic
     Route: 048
  6. CHOLECALCIFEROL [Concomitant]
     Active Substance: CHOLECALCIFEROL
     Indication: Product used for unknown indication

REACTIONS (13)
  - Acute myocardial infarction [Unknown]
  - Sinus tachycardia [Unknown]
  - Troponin increased [Recovered/Resolved]
  - Electrocardiogram T wave inversion [Not Recovered/Not Resolved]
  - Unevaluable event [Recovered/Resolved]
  - Cardiopulmonary failure [Recovered/Resolved]
  - Ventricular extrasystoles [Unknown]
  - Cardiopulmonary failure [Unknown]
  - Troponin increased [Recovered/Resolved]
  - Troponin increased [Unknown]
  - Coronary artery dissection [Unknown]
  - Chest discomfort [Unknown]
  - Arterial intramural haematoma [Unknown]

NARRATIVE: CASE EVENT DATE: 20250317
